FAERS Safety Report 8067834-6 (Version None)
Quarter: 2012Q1

REPORT INFORMATION
  Report Type: 
  Country: None (occurrence: None)
  Receive Date: 20120124
  Receipt Date: 20120123
  Transmission Date: 20120608
  Serious: Yes (Life-Threatening, Hospitalization, Other)
  Sender: FDA-Public Use
  Company Number: DE-PFIZER INC-2012017737

PATIENT
  Age: 78 Year
  Sex: Male
  Weight: 72 kg

DRUGS (1)
  1. TEMSIROLIMUS [Suspect]
     Indication: MANTLE CELL LYMPHOMA RECURRENT
     Dosage: 75 MG, WEEKLY
     Route: 042
     Dates: start: 20111214

REACTIONS (4)
  - ACUTE PRERENAL FAILURE [None]
  - URINARY TRACT INFECTION [None]
  - BLOOD ELECTROLYTES ABNORMAL [None]
  - DEHYDRATION [None]
